FAERS Safety Report 20465985 (Version 5)
Quarter: 2022Q1

REPORT INFORMATION
  Report Type: Report from Study
  Country: MD (occurrence: None)
  Receive Date: 20220212
  Receipt Date: 20220302
  Transmission Date: 20220423
  Serious: Yes (Life-Threatening, Hospitalization)
  Sender: FDA-Public Use
  Company Number: MD-ROCHE-3022625

PATIENT
  Age: 59 Year
  Sex: Male
  Weight: 72.8 kg

DRUGS (6)
  1. ATEZOLIZUMAB [Suspect]
     Active Substance: ATEZOLIZUMAB
     Indication: Neoplasm
     Dosage: DOSE LAST STUDY DRUG ADMIN PRIOR AE AND SAE 1200 MG?START DATE OF MOST RECENT DOSE OF STUDY DRUG PRI
     Route: 041
     Dates: start: 20220119
  2. TIRAGOLUMAB [Suspect]
     Active Substance: TIRAGOLUMAB
     Indication: Neoplasm
     Dosage: DOSE LAST STUDY DRUG ADMIN PRIOR AE 928.89 MG?DOSE LAST STUDY DRUG ADMIN PRIOR SAE 317.78 MG?START D
     Route: 058
     Dates: start: 20211208
  3. TIRAGOLUMAB [Suspect]
     Active Substance: TIRAGOLUMAB
     Dosage: DOSE LAST STUDY DRUG ADMIN PRIOR AE AND SAE 600 MG?START DATE OF MOST RECENT DOSE OF STUDY DRUG PRIO
     Route: 042
     Dates: start: 20220119
  4. ATEZOLIZUMAB [Suspect]
     Active Substance: ATEZOLIZUMAB
     Indication: Neoplasm
     Dosage: DOSE LAST STUDY DRUG ADMIN PRIOR AE 1649.31 MG AND SAE 564.24 MG?START DATE OF MOST RECENT DOSE OF S
     Route: 058
     Dates: start: 20211208
  5. METFORMIN [Concomitant]
     Active Substance: METFORMIN HYDROCHLORIDE
     Indication: Type 2 diabetes mellitus
     Route: 048
     Dates: start: 201505
  6. DEXKETOPROFEN [Concomitant]
     Active Substance: DEXKETOPROFEN
     Indication: Back pain
     Route: 030
     Dates: start: 20211010

REACTIONS (1)
  - Acute kidney injury [Recovered/Resolved]

NARRATIVE: CASE EVENT DATE: 20220207
